FAERS Safety Report 5206061-4 (Version None)
Quarter: 2007Q1

REPORT INFORMATION
  Report Type: 
  Country: None (occurrence: None)
  Receive Date: 20070111
  Receipt Date: 20070102
  Transmission Date: 20070707
  Serious: Yes (Other)
  Sender: FDA-Public Use
  Company Number: CHNY2007GB00440

PATIENT
  Age: 54 Year
  Sex: Male

DRUGS (47)
  1. ACTRAPID HUMAN [Suspect]
     Route: 042
  2. ALFENTANIL [Suspect]
  3. AMOXICILLIN [Suspect]
     Dosage: 1 G, TID
     Route: 042
  4. AQUASEPT [Suspect]
  5. BACTROBAN [Suspect]
  6. CALCIUM CHLORIDE [Suspect]
  7. CALCIUM GLUCONATE [Suspect]
     Dosage: 10 ML, UNK
     Route: 042
  8. CEFTRIAXONE [Suspect]
     Dosage: 2 G, UNK
     Route: 042
  9. CLEXANE [Suspect]
     Dosage: 20 MG, QD
     Route: 058
  10. DOBUTAMINE (NGX) [Suspect]
  11. FLUCONAZOLE [Suspect]
     Dosage: 200 MG, QD
     Route: 042
  12. FRAGMIN [Suspect]
     Dosage: 2500 U, QD
  13. FUROSEMIDE [Suspect]
     Dosage: 20 MG, BID
     Route: 042
  14. FUROSEMIDE [Suspect]
     Dosage: 20 MG, QD
     Route: 048
  15. HYDROCORTISONE [Suspect]
     Dosage: 100 MG, ONCE/SINGLE
  16. LANZOPRAZOL [Suspect]
     Dosage: 30 MG, UNK
  17. LORAZEPAM [Suspect]
  18. MAGNESIUM SULFATE [Suspect]
  19. NORADRENALINE [Suspect]
  20. OMEPRAZOLE [Suspect]
     Dosage: 40 MG, UNK
     Route: 042
  21. ACETAMINOPHEN [Suspect]
  22. PIRITON [Suspect]
     Dosage: 10 MG, QID
     Route: 042
  23. POTASSIUM CHLORIDE [Suspect]
  24. POTASSIUM PHOSPHATE, MONOBASIC [Suspect]
  25. PROPOFOL [Suspect]
  26. SALBUTAMOL (NGX) [Suspect]
     Dosage: UNK, PRN
  27. SANDO K [Suspect]
     Dosage: 2 DF, TID
  28. SILVER SULFADIAZINE [Suspect]
     Route: 061
  29. SIMVASTATIN [Suspect]
     Dosage: 40 MG, QD
  30. SODIUM BICARBONATE [Suspect]
     Dosage: 100 MG/H, UNK
     Route: 042
  31. SODIUM CHLORIDE [Suspect]
     Dosage: 0.9%
     Route: 042
  32. THIAMINE [Suspect]
     Dosage: 100 MG, QD
     Route: 048
  33. TINZAPARIN [Suspect]
     Dosage: 3500 UL, 1 DAY
  34. VITAMIN K TAB [Suspect]
  35. AMOXICILLIN [Concomitant]
     Dosage: 250 MG, UNK
     Route: 048
     Dates: start: 20060913
  36. ASPIRIN [Concomitant]
     Route: 048
  37. ATROVENT [Concomitant]
     Dosage: UNK, PRN
  38. CIPROFLOXACIN [Concomitant]
     Dosage: 400 MG, QD
     Route: 042
  39. AMOXICILLIN + CLAVULANATE POTASSIUM [Concomitant]
     Dosage: 375 MG, TID
     Dates: start: 20060913
  40. ERYTHROMYCIN [Concomitant]
     Dosage: 250 MG, UNK
  41. METOCLOPRAMIDE [Concomitant]
     Dosage: 10 MG, UNK
     Route: 042
  42. MIDODRINE [Concomitant]
     Route: 048
  43. PANTOPRAZOLE SODIUM [Concomitant]
     Dosage: 40 MG, UNK
     Route: 042
  44. TAZOCIN [Concomitant]
     Dosage: 4.5 G, TID
  45. VANCOMYCIN [Concomitant]
     Dosage: 1 G, QD
     Route: 042
  46. ZOPICLONE [Concomitant]
     Route: 048
  47. LACTULOSE [Suspect]
     Dosage: 10 ML, UNK

REACTIONS (1)
  - TOXIC EPIDERMAL NECROLYSIS [None]
